FAERS Safety Report 4348949-2 (Version None)
Quarter: 2004Q2

REPORT INFORMATION
  Report Type: 
  Country: None (occurrence: None)
  Receive Date: 20040423
  Receipt Date: 20040414
  Transmission Date: 20050107
  Serious: Yes (Death)
  Sender: FDA-Public Use
  Company Number: HQWYE462514APR04

PATIENT
  Age: 64 Year
  Sex: Female

DRUGS (5)
  1. IBUPROFEN AND PSEUDOEPHEDRINE HCL [Suspect]
     Dosage: UNSPECIFIED DOSE THREE TIMES DAILY ORAL
     Route: 048
     Dates: start: 20040217, end: 20040219
  2. LYSOPAINE (BACITRACIN/LYSOZYME/PAPAIN) [Concomitant]
  3. NECYRANE (RITIOMETAN MAGNESIUM) [Concomitant]
  4. HAVLANE (LOPRAZOLAM MESILATE) [Concomitant]
  5. DEXTROMETHORPHAN HYDROBROMIDE (DEXTROMETHORPHAN HYDROBROMIDE) [Concomitant]

REACTIONS (5)
  - CELLULITIS [None]
  - HYPERSENSITIVITY [None]
  - MULTI-ORGAN FAILURE [None]
  - SEPTIC SHOCK [None]
  - STREPTOCOCCAL INFECTION [None]
